FAERS Safety Report 19622328 (Version 1)
Quarter: 2021Q3

REPORT INFORMATION
  Report Type: Spontaneous
  Country: US (occurrence: US)
  Receive Date: 20210728
  Receipt Date: 20210728
  Transmission Date: 20211014
  Serious: Yes (Other)
  Sender: FDA-Public Use
  Company Number: US-ALS-000339

PATIENT
  Age: 35 Year
  Sex: Female

DRUGS (1)
  1. QUETIAPINE. [Suspect]
     Active Substance: QUETIAPINE
     Indication: PRODUCT USED FOR UNKNOWN INDICATION
     Dosage: 36 G
     Route: 065

REACTIONS (15)
  - Hypoxia [Unknown]
  - Mucosal disorder [Unknown]
  - Pulmonary oedema [Unknown]
  - Somnolence [Unknown]
  - White blood cell count increased [Recovered/Resolved]
  - Status epilepticus [Unknown]
  - Depressed level of consciousness [Unknown]
  - Lung infiltration [Unknown]
  - Overdose [Unknown]
  - Dysarthria [Unknown]
  - Toxic encephalopathy [Unknown]
  - Respiratory distress [Unknown]
  - Pneumonia [Unknown]
  - Endotracheal intubation [Unknown]
  - Sudden onset of sleep [Unknown]
